FAERS Safety Report 18495055 (Version 1)
Quarter: 2020Q4

REPORT INFORMATION
  Report Type: Spontaneous
  Country: US (occurrence: US)
  Receive Date: 20201111
  Receipt Date: 20201111
  Transmission Date: 20210114
  Serious: Yes (Other)
  Sender: FDA-Public Use
  Company Number: None

PATIENT
  Age: 70 Year
  Sex: Male
  Weight: 98.4 kg

DRUGS (9)
  1. CAPECITABINE. [Suspect]
     Active Substance: CAPECITABINE
     Indication: MALIGNANT PERITONEAL NEOPLASM
     Dosage: ?          OTHER FREQUENCY:14 DAYS ON/OFF;?
     Route: 048
     Dates: start: 20201013, end: 20201111
  2. SIMETHICONE (DIMETHICONE) [Concomitant]
     Active Substance: DIMETHICONE
  3. FUROSEMIDE. [Concomitant]
     Active Substance: FUROSEMIDE
  4. XARELTO [Concomitant]
     Active Substance: RIVAROXABAN
  5. ACETAMINOPHEN. [Concomitant]
     Active Substance: ACETAMINOPHEN
  6. GABAPENTIN. [Concomitant]
     Active Substance: GABAPENTIN
  7. CAPECITABINE. [Suspect]
     Active Substance: CAPECITABINE
     Indication: RETROPERITONEAL CANCER
     Dosage: ?          OTHER FREQUENCY:14 DAYS ON/OFF;?
     Route: 048
     Dates: start: 20201013, end: 20201111
  8. LORATADINE. [Concomitant]
     Active Substance: LORATADINE
  9. MUPIROCIN. [Concomitant]
     Active Substance: MUPIROCIN

REACTIONS (1)
  - Thrombocytopenia [None]

NARRATIVE: CASE EVENT DATE: 20201111
